FAERS Safety Report 18491458 (Version 2)
Quarter: 2020Q4

REPORT INFORMATION
  Report Type: Spontaneous
  Country: US (occurrence: US)
  Receive Date: 20201111
  Receipt Date: 20201123
  Transmission Date: 20210114
  Serious: Yes (Other)
  Sender: FDA-Public Use
  Company Number: US-ALLERGAN-2039476US

PATIENT
  Sex: Female

DRUGS (1)
  1. LILETTA [Suspect]
     Active Substance: LEVONORGESTREL
     Indication: CONTRACEPTION
     Dosage: 52 MG, SINGLE
     Route: 015
     Dates: start: 20200622, end: 202010

REACTIONS (7)
  - Uterine haemorrhage [Recovered/Resolved]
  - Drug ineffective [Unknown]
  - Pregnancy [Unknown]
  - Infection [Recovered/Resolved]
  - Uterine spasm [Recovered/Resolved]
  - Endometritis [Recovered/Resolved]
  - Abortion spontaneous [Unknown]

NARRATIVE: CASE EVENT DATE: 2020
